FAERS Safety Report 7042145-6 (Version None)
Quarter: 2010Q4

REPORT INFORMATION
  Report Type: 
  Country: None (occurrence: None)
  Receive Date: 20101013
  Receipt Date: 20100805
  Transmission Date: 20110411
  Serious: No
  Sender: FDA-Public Use
  Company Number: US-ASTRAZENECA-2010SE35569

PATIENT
  Age: 79 Year
  Sex: Female
  Weight: 90.7 kg

DRUGS (3)
  1. SYMBICORT [Suspect]
     Indication: ASTHMA
     Dosage: 160 MCG, BID
     Route: 055
     Dates: start: 20100201
  2. DIOVAN [Concomitant]
  3. ALBUTEROL [Concomitant]

REACTIONS (1)
  - NOCTURNAL DYSPNOEA [None]
